FAERS Safety Report 11704772 (Version 1)
Quarter: 2015Q4

REPORT INFORMATION
  Report Type: Spontaneous
  Country: FR (occurrence: FR)
  Receive Date: 20151106
  Receipt Date: 20151106
  Transmission Date: 20160304
  Serious: Yes (Other)
  Sender: FDA-Public Use
  Company Number: FR-B. BRAUN MEDICAL INC.-1043843

PATIENT
  Age: 15 Month
  Sex: Female
  Weight: 5.6 kg

DRUGS (1)
  1. NUTRILIPID I.V. FAT EMULSION [Suspect]
     Active Substance: SOYBEAN OIL
     Route: 042

REACTIONS (1)
  - Bradycardia [None]
